FAERS Safety Report 14623301 (Version 2)
Quarter: 2018Q1

REPORT INFORMATION
  Report Type: Spontaneous
  Country: IT (occurrence: IT)
  Receive Date: 20180312
  Receipt Date: 20180314
  Transmission Date: 20180509
  Serious: Yes (Hospitalization)
  Sender: FDA-Public Use
  Company Number: IT-009507513-1803ITA001291

PATIENT
  Age: 68 Year
  Sex: Male

DRUGS (3)
  1. SINEMET [Suspect]
     Active Substance: CARBIDOPA\LEVODOPA
     Indication: PARKINSON^S DISEASE
     Dosage: UNK
     Route: 065
     Dates: start: 2004
  2. SINEMET [Suspect]
     Active Substance: CARBIDOPA\LEVODOPA
     Dosage: 100 MG+25 MG
     Route: 065
     Dates: start: 20080626
  3. MIRAPEXIN [Suspect]
     Active Substance: PRAMIPEXOLE
     Indication: PARKINSON^S DISEASE
     Route: 065
     Dates: start: 2004, end: 2008

REACTIONS (14)
  - Gambling disorder [Recovering/Resolving]
  - Dental leakage [Recovering/Resolving]
  - General physical health deterioration [Unknown]
  - Depression [Recovering/Resolving]
  - Social problem [Unknown]
  - Tooth loss [Unknown]
  - Dyspepsia [Recovering/Resolving]
  - Bipolar I disorder [Recovering/Resolving]
  - Cholecystitis chronic [Recovering/Resolving]
  - Bipolar I disorder [Not Recovered/Not Resolved]
  - Sexual dysfunction [Unknown]
  - Economic problem [Unknown]
  - Mental disorder [Unknown]
  - Feeling guilty [Not Recovered/Not Resolved]

NARRATIVE: CASE EVENT DATE: 20080418
